FAERS Safety Report 16831129 (Version 2)
Quarter: 2019Q4

REPORT INFORMATION
  Report Type: Spontaneous
  Country: US (occurrence: US)
  Receive Date: 20190920
  Receipt Date: 20191015
  Transmission Date: 20200122
  Serious: No
  Sender: FDA-Public Use
  Company Number: US-ASTRAZENECA-2019SF32772

PATIENT
  Age: 22778 Day
  Sex: Male

DRUGS (4)
  1. BYDUREON BCISE [Suspect]
     Active Substance: EXENATIDE
     Indication: DIABETES MELLITUS
     Dosage: 2.0MG UNKNOWN
     Route: 065
  2. CLOBETASOL PROPINATE 0.5% [Concomitant]
     Indication: GENITAL INFECTION
  3. CICLOPIROX OLAMINE. [Concomitant]
     Active Substance: CICLOPIROX OLAMINE
     Indication: PSORIASIS
  4. BETAMETHASONE DIAPROPINATE 0.5 % [Concomitant]
     Indication: PSORIASIS

REACTIONS (5)
  - Blood glucose increased [Not Recovered/Not Resolved]
  - Genital infection fungal [Unknown]
  - Injection site nodule [Unknown]
  - Injection site bruising [Unknown]
  - Incorrect dose administered by device [Not Recovered/Not Resolved]

NARRATIVE: CASE EVENT DATE: 20190909
